FAERS Safety Report 10457133 (Version 1)
Quarter: 2014Q3

REPORT INFORMATION
  Report Type: Spontaneous
  Country: FI (occurrence: FI)
  Receive Date: 20140916
  Receipt Date: 20140916
  Transmission Date: 20150326
  Serious: Yes (Hospitalization)
  Sender: FDA-Public Use
  Company Number: PHHY2014FI117098

PATIENT
  Age: 20 Year
  Sex: Female

DRUGS (1)
  1. DROSPIRENONE+ETHINYLESTRADIOL [Suspect]
     Active Substance: DROSPIRENONE\ETHINYL ESTRADIOL
     Dates: start: 20130815, end: 20140815

REACTIONS (2)
  - Pulmonary embolism [Not Recovered/Not Resolved]
  - Cor pulmonale [Not Recovered/Not Resolved]

NARRATIVE: CASE EVENT DATE: 20140814
